FAERS Safety Report 9286422 (Version 1)
Quarter: 2013Q2

REPORT INFORMATION
  Report Type: Spontaneous
  Country: US (occurrence: None)
  Receive Date: 20130503
  Receipt Date: 20130503
  Transmission Date: 20140414
  Serious: Yes (Hospitalization)
  Sender: FDA-Public Use
  Company Number: KV201300075

PATIENT
  Age: 23 Year
  Sex: Female

DRUGS (2)
  1. MAKENA [Suspect]
     Indication: PREMATURE DELIVERY
     Dosage: 250 MG, ONCE WEEKLY, INTRAMUSCULAR
     Route: 030
     Dates: start: 201303, end: 201304
  2. KEPPRA (LEVETIRACETAM) [Concomitant]

REACTIONS (4)
  - Premature rupture of membranes [None]
  - Premature delivery [None]
  - Amniotic cavity infection [None]
  - Maternal exposure during pregnancy [None]
